FAERS Safety Report 13567471 (Version 1)
Quarter: 2017Q2

REPORT INFORMATION
  Report Type: Spontaneous
  Country: US (occurrence: US)
  Receive Date: 20170522
  Receipt Date: 20170522
  Transmission Date: 20170830
  Serious: No
  Sender: FDA-Public Use
  Company Number: US-PFIZER INC-2017218315

PATIENT
  Sex: Female

DRUGS (1)
  1. XELJANZ XR [Suspect]
     Active Substance: TOFACITINIB CITRATE
     Dosage: 11 MG, DAILY

REACTIONS (18)
  - Hypoaesthesia [Unknown]
  - Paraesthesia [Unknown]
  - Arthralgia [Recovering/Resolving]
  - Synovitis [Unknown]
  - Joint stiffness [Unknown]
  - Headache [Unknown]
  - Osteoarthritis [Unknown]
  - Arthropathy [Unknown]
  - Dyspepsia [Unknown]
  - Musculoskeletal stiffness [Recovered/Resolved]
  - Rash [Unknown]
  - Night sweats [Unknown]
  - Muscle spasms [Unknown]
  - Pustular psoriasis [Recovering/Resolving]
  - Dizziness [Recovered/Resolved]
  - Swelling [Recovered/Resolved]
  - Myalgia [Recovered/Resolved]
  - Asthenia [Unknown]
